FAERS Safety Report 9617570 (Version 1)
Quarter: 2013Q4

REPORT INFORMATION
  Report Type: Spontaneous
  Country: GB (occurrence: GB)
  Receive Date: 20131011
  Receipt Date: 20131011
  Transmission Date: 20140711
  Serious: Yes (Other)
  Sender: FDA-Public Use
  Company Number: GB-ASTRAZENECA-2013SE73804

PATIENT
  Sex: Male

DRUGS (2)
  1. LOSEC [Suspect]
     Route: 048
  2. LOSEC [Suspect]
     Dosage: GENERIC
     Route: 048

REACTIONS (5)
  - Neoplasm malignant [Unknown]
  - Oesophageal pain [Unknown]
  - Gastric pH decreased [Unknown]
  - Dyspepsia [Unknown]
  - Drug ineffective [Unknown]
